FAERS Safety Report 9461719 (Version 2)
Quarter: 2013Q4

REPORT INFORMATION
  Report Type: Report from Study
  Country: JP (occurrence: JP)
  Receive Date: 20130816
  Receipt Date: 20131009
  Transmission Date: 20140711
  Serious: Yes (Other)
  Sender: FDA-Public Use
  Company Number: JP-ASTELLAS-2013JP008533

PATIENT
  Age: 79 Year
  Sex: Male
  Weight: 52 kg

DRUGS (2)
  1. MIRABEGRON [Suspect]
     Indication: HYPERTONIC BLADDER
     Dosage: 50 MG, UID/QD
     Route: 048
     Dates: start: 20121105, end: 20121225
  2. MIRABEGRON [Suspect]
     Dosage: 50 MG, UID/QD
     Route: 048
     Dates: start: 201306, end: 201306

REACTIONS (2)
  - Pneumonia [Recovering/Resolving]
  - Contusion [Recovering/Resolving]
